FAERS Safety Report 8927402 (Version 3)
Quarter: 2014Q1

REPORT INFORMATION
  Report Type: Report from Study
  Country: JP (occurrence: JP)
  Receive Date: 20121127
  Receipt Date: 20140326
  Transmission Date: 20141002
  Serious: Yes (Other)
  Sender: FDA-Public Use
  Company Number: JP-VERTEX PHARMACEUTICAL INC.-2012-025072

PATIENT
  Age: 48 Year
  Sex: Male

DRUGS (21)
  1. VX-950 (TELAPREVIR) [Suspect]
     Indication: CHRONIC HEPATITIS C
     Dosage: 1500 MG, QD
     Route: 048
     Dates: start: 20120907, end: 20121123
  2. RIBAVIRIN [Suspect]
     Indication: CHRONIC HEPATITIS C
     Dosage: 800 MG, QD
     Route: 048
     Dates: start: 20120907, end: 20120927
  3. RIBAVIRIN [Suspect]
     Dosage: 600 MG, QD
     Route: 048
     Dates: start: 20120928, end: 20121108
  4. RIBAVIRIN [Suspect]
     Dosage: 400 MG, QD
     Route: 048
     Dates: start: 20121109, end: 20121123
  5. PEGINTERFERON ALFA-2B [Suspect]
     Indication: CHRONIC HEPATITIS C
     Dosage: 1.45 ?G/KG, QW
     Route: 058
     Dates: start: 20120907, end: 20121123
  6. MUCOSTA [Concomitant]
     Dosage: 300 MG, QD
     Route: 048
     Dates: end: 20121004
  7. AMARYL [Concomitant]
     Dosage: 0.5 MG, QD
     Route: 048
  8. METGLUCO [Concomitant]
     Dosage: 1000 MG, QD
     Route: 048
  9. JANUVIA [Concomitant]
     Dosage: 50 MG, QD
     Route: 048
  10. ZYLORIC [Concomitant]
     Dosage: 200 MG, QD
     Route: 048
     Dates: start: 20120907, end: 20121108
  11. ZYLORIC [Concomitant]
     Dosage: 100 MG, QD
     Route: 048
     Dates: start: 20121109
  12. LOXOPROFEN [Concomitant]
     Dosage: 60 MG, QD
     Route: 048
     Dates: start: 20120907, end: 20121004
  13. LOXOPROFEN [Concomitant]
     Dosage: 60 MG, PRN
     Route: 048
     Dates: start: 20121129
  14. GASTER D [Concomitant]
     Dosage: 40 MG, QD
     Route: 048
     Dates: start: 20120914, end: 20121004
  15. MAALOX [Concomitant]
     Dosage: 3.6 G, QD
     Route: 048
     Dates: start: 20120928, end: 20121123
  16. LASIX [Concomitant]
     Dosage: 40 MG, QD
     Route: 048
     Dates: start: 20121003, end: 20121018
  17. ALDACTONE A [Concomitant]
     Dosage: 25 MG, QD
     Route: 048
     Dates: start: 20121003, end: 20121018
  18. PARIET [Concomitant]
     Dosage: 10 MG, QD
     Route: 048
     Dates: start: 20121005, end: 20121123
  19. ALLELOCK [Concomitant]
     Dosage: 10 MG, QD
     Route: 048
     Dates: start: 20121109, end: 20121129
  20. POLARAMINE [Concomitant]
     Dosage: 4 MG, QD
     Route: 048
     Dates: start: 20121116, end: 20121129
  21. ATARAX-P [Concomitant]
     Dosage: 25 MG/ 1 ML, AS NEEDED
     Route: 042
     Dates: start: 20121123, end: 20121126

REACTIONS (3)
  - Gastrointestinal haemorrhage [Recovered/Resolved]
  - Erythema multiforme [Recovering/Resolving]
  - Haemoglobin decreased [Recovered/Resolved]
